FAERS Safety Report 8262151-3 (Version None)
Quarter: 2012Q2

REPORT INFORMATION
  Report Type: 
  Country: None (occurrence: None)
  Receive Date: 20120405
  Receipt Date: 20120307
  Transmission Date: 20120825
  Serious: Yes (Other)
  Sender: FDA-Public Use
  Company Number: IT-ROCHE-1046710

PATIENT
  Sex: Male

DRUGS (10)
  1. PREDNISONE TAB [Concomitant]
     Route: 048
     Dates: start: 20111104, end: 20111124
  2. LEVOFLOXACIN [Concomitant]
     Route: 048
     Dates: start: 20111107, end: 20111117
  3. MABTHERA [Suspect]
     Indication: DIFFUSE LARGE B-CELL LYMPHOMA STAGE II
     Route: 042
     Dates: start: 20111018, end: 20120112
  4. ALLOPURINOL [Concomitant]
     Route: 048
     Dates: start: 20111102, end: 20111202
  5. VALSARTAN  AND HYDROCHLOROTHIAZIDE [Concomitant]
     Route: 048
  6. VINCRISTINE [Suspect]
     Indication: DIFFUSE LARGE B-CELL LYMPHOMA STAGE II
     Route: 042
     Dates: start: 20111010, end: 20120113
  7. CYCLOPHOSPHAMIDE [Suspect]
     Indication: DIFFUSE LARGE B-CELL LYMPHOMA STAGE II
     Route: 042
     Dates: start: 20111011, end: 20120113
  8. DOXORUBICIN HCL [Suspect]
     Indication: DIFFUSE LARGE B-CELL LYMPHOMA STAGE II
     Route: 042
     Dates: start: 20111011, end: 20120113
  9. BACTRIM [Suspect]
     Indication: ANTIFUNGAL PROPHYLAXIS
     Route: 048
     Dates: start: 20111102, end: 20111219
  10. SPORANOX [Suspect]
     Indication: ANTIFUNGAL PROPHYLAXIS
     Route: 042
     Dates: start: 20111102, end: 20111202

REACTIONS (1)
  - HYPERTRANSAMINASAEMIA [None]
